FAERS Safety Report 9844942 (Version 2)
Quarter: 2014Q1

REPORT INFORMATION
  Report Type: Spontaneous
  Country: DE (occurrence: None)
  Receive Date: 20140122
  Receipt Date: 20140127
  Transmission Date: 20141002
  Serious: Yes (Death, Life-Threatening, Hospitalization)
  Sender: FDA-Public Use
  Company Number: AUR-APL-2014-00406

PATIENT
  Age: 82 Year
  Sex: Female
  Weight: 77 kg

DRUGS (9)
  1. SIMVASTATIN (SIMVASTATIN) [Suspect]
     Indication: CORONARY ARTERY DISEASE
     Route: 048
  2. CLARITHROMYCIN (CLARITHROMYCIN) [Suspect]
     Indication: PNEUMONIA
     Route: 048
     Dates: start: 20131115, end: 20131120
  3. PHENPROCOUMON (PHENPROCOUMON) [Suspect]
     Indication: PRODUCT USED FOR UNKNOWN INDICATION
     Route: 048
  4. TAZOBAC EF (PIP/TAZO) [Suspect]
     Indication: PNEUMONIA
     Dates: start: 20131113, end: 20131120
  5. VALDOXAN (AGOMELATINE) [Suspect]
     Indication: DEPRESSION
     Route: 048
     Dates: start: 20131114, end: 20131120
  6. ENALAPRIL (ENALAPRIL) [Concomitant]
  7. TILIDOIN (VALORON N ) [Concomitant]
  8. NOVALGIN (NOVO-PETRIN) [Concomitant]
  9. OPIPRAMOL (OPIPRAMOL) [Concomitant]

REACTIONS (10)
  - Drug-induced liver injury [None]
  - Blood cholesterol increased [None]
  - Right ventricular failure [None]
  - Generalised oedema [None]
  - Protein deficiency [None]
  - General physical health deterioration [None]
  - Nausea [None]
  - Listless [None]
  - Atypical pneumonia [None]
  - Refusal of treatment by patient [None]
